FAERS Safety Report 8313747-1 (Version None)
Quarter: 2012Q2

REPORT INFORMATION
  Report Type: 
  Country: None (occurrence: None)
  Receive Date: 20120426
  Receipt Date: 20120419
  Transmission Date: 20120825
  Serious: Yes (Hospitalization)
  Sender: FDA-Public Use
  Company Number: US-JNJFOC-20120409692

PATIENT
  Age: 10 Year
  Sex: Female

DRUGS (21)
  1. VINCRISTINE [Suspect]
     Route: 065
  2. CYTARABINE [Suspect]
     Dosage: DAILY FOR 5 DAYS
     Route: 065
  3. CYCLOPHOSPHAMIDE [Suspect]
     Route: 065
  4. PREDNISOLONE [Suspect]
     Indication: BURKITT'S LYMPHOMA STAGE III
     Dosage: FOR 5 DAYS
     Route: 065
  5. METHOTREXATE [Suspect]
     Route: 065
  6. METHOTREXATE [Suspect]
     Indication: BURKITT'S LYMPHOMA STAGE III
     Route: 065
  7. METHOTREXATE [Suspect]
     Route: 065
  8. METHOTREXATE [Suspect]
     Route: 037
  9. METHOTREXATE [Suspect]
     Route: 037
  10. CYTARABINE [Suspect]
     Indication: BURKITT'S LYMPHOMA STAGE III
     Dosage: DAILY FOR 5 DAYS
     Route: 065
  11. DOXORUBICIN HYDROCHLORIDE [Suspect]
     Route: 042
  12. VINCRISTINE [Suspect]
     Indication: BURKITT'S LYMPHOMA STAGE III
     Route: 065
  13. PREDNISOLONE [Suspect]
     Dosage: FOR 7 DAYS
     Route: 065
  14. PREDNISOLONE [Suspect]
     Dosage: FOR 5 DAYS
     Route: 065
  15. CYCLOPHOSPHAMIDE [Suspect]
     Indication: BURKITT'S LYMPHOMA STAGE III
     Dosage: FOR 6 DOSES
     Route: 065
  16. VINCRISTINE [Suspect]
     Route: 065
  17. METHOTREXATE [Suspect]
     Route: 065
  18. DOXORUBICIN HYDROCHLORIDE [Suspect]
     Indication: BURKITT'S LYMPHOMA STAGE III
     Route: 042
  19. CYCLOPHOSPHAMIDE [Suspect]
     Dosage: FOR 6 DOSES
     Route: 065
  20. METHOTREXATE [Suspect]
     Route: 037
  21. RITUXIMAB [Suspect]
     Indication: BURKITT'S LYMPHOMA STAGE III
     Dosage: GIVEN EVERY 2+#150;4 WEEKS FOR 5 TOTAL DOSES
     Route: 065

REACTIONS (8)
  - SMALL INTESTINAL OBSTRUCTION [None]
  - SEPSIS [None]
  - HYPERTENSION [None]
  - RENAL FAILURE [None]
  - FEBRILE NEUTROPENIA [None]
  - DRUG TOLERANCE DECREASED [None]
  - ABDOMINAL COMPARTMENT SYNDROME [None]
  - PANCYTOPENIA [None]
